FAERS Safety Report 15622315 (Version 1)
Quarter: 2018Q4

REPORT INFORMATION
  Report Type: Other
  Country: None (occurrence: CO)
  Receive Date: 20181115
  Receipt Date: 20181115
  Transmission Date: 20190205
  Serious: Yes (Other)
  Sender: FDA-Public Use
  Company Number: CO-POPULATION COUNCIL, INC.-2058899

PATIENT
  Sex: Female
  Weight: 65.99 kg

DRUGS (1)
  1. JADELLE [Suspect]
     Active Substance: LEVONORGESTREL
     Indication: CONTRACEPTION
     Route: 059
     Dates: start: 20170727, end: 20180521

REACTIONS (4)
  - Drug ineffective [None]
  - Headache [None]
  - Pregnancy with implant contraceptive [Unknown]
  - Vomiting [None]
